FAERS Safety Report 14076667 (Version 2)
Quarter: 2017Q4

REPORT INFORMATION
  Report Type: Spontaneous
  Country: GB (occurrence: GB)
  Receive Date: 20171011
  Receipt Date: 20171021
  Transmission Date: 20180321
  Serious: Yes (Hospitalization)
  Sender: FDA-Public Use
  Company Number: GB-NORTHSTAR HEALTHCARE HOLDINGS-GB-2017NSR000203

PATIENT
  Age: 21 Year
  Sex: Female

DRUGS (3)
  1. PROPRANOLOL HYDROCHLORIDE. [Suspect]
     Active Substance: PROPRANOLOL HYDROCHLORIDE
     Indication: ANXIETY
     Dosage: 160 DF, SINGLE
  2. OLANZAPINE. [Suspect]
     Active Substance: OLANZAPINE
     Indication: PRODUCT USED FOR UNKNOWN INDICATION
     Dosage: 56 DF, SINGLE
  3. AMLODIPINE [Suspect]
     Active Substance: AMLODIPINE BESYLATE
     Indication: PRODUCT USED FOR UNKNOWN INDICATION
     Dosage: 28 DF, SINGLE

REACTIONS (8)
  - Coma [Recovered/Resolved]
  - Respiratory depression [Recovered/Resolved]
  - Bezoar [Recovered/Resolved]
  - Suicide attempt [Recovered/Resolved]
  - Product use in unapproved indication [Unknown]
  - Circulatory collapse [Recovered/Resolved]
  - Toxicity to various agents [Recovered/Resolved]
  - Overdose [Recovered/Resolved]
